FAERS Safety Report 5385622-6 (Version None)
Quarter: 2007Q3

REPORT INFORMATION
  Report Type: 
  Country: None (occurrence: None)
  Receive Date: 20070712
  Receipt Date: 20070702
  Transmission Date: 20080115
  Serious: Yes (Hospitalization)
  Sender: FDA-Public Use
  Company Number: US-ASTRAZENECA-2007UW01957

PATIENT
  Age: 15556 Day
  Sex: Female
  Weight: 122.7 kg

DRUGS (38)
  1. SEROQUEL [Suspect]
     Indication: DEPRESSION
     Route: 048
     Dates: start: 20011202, end: 20030831
  2. SEROQUEL [Suspect]
     Indication: INSOMNIA
     Route: 048
     Dates: start: 20011202, end: 20030831
  3. SEROQUEL [Suspect]
     Dosage: 100 MG - 500 MG
     Route: 048
     Dates: start: 20011221, end: 20031013
  4. SEROQUEL [Suspect]
     Dosage: 100 MG - 500 MG
     Route: 048
     Dates: start: 20011221, end: 20031013
  5. SEROQUEL [Suspect]
     Route: 048
     Dates: start: 20031013
  6. SEROQUEL [Suspect]
     Route: 048
     Dates: start: 20031013
  7. SEROQUEL [Suspect]
     Route: 048
     Dates: start: 20040101
  8. SEROQUEL [Suspect]
     Route: 048
     Dates: start: 20040101
  9. PAXIL [Concomitant]
     Route: 048
     Dates: start: 20010101
  10. PAXIL [Concomitant]
     Route: 048
     Dates: start: 20020326
  11. EFFEXOR XR [Concomitant]
     Route: 048
     Dates: start: 20020211, end: 20020218
  12. EFFEXOR XR [Concomitant]
     Route: 048
     Dates: start: 20020218
  13. GLUCOPHAGE [Concomitant]
     Route: 048
     Dates: start: 20031013
  14. GLUCOPHAGE [Concomitant]
     Route: 048
     Dates: start: 20040213
  15. GLUCOPHAGE [Concomitant]
     Route: 048
     Dates: start: 20040303
  16. BEXTRA [Concomitant]
     Route: 048
  17. NEURONTIN [Concomitant]
     Route: 048
  18. BENADRYL [Concomitant]
     Route: 048
  19. ADVAIR DISKUS 250/50 [Concomitant]
     Dosage: 250 + 50 MCG TWICE DAILY
  20. AVANDIA [Concomitant]
     Route: 048
     Dates: start: 20040303
  21. AVANDIA [Concomitant]
     Route: 048
     Dates: start: 20040806
  22. SINGULAIR [Concomitant]
     Indication: PRURITUS
  23. CLARITIN [Concomitant]
     Route: 048
  24. ASPIRIN [Concomitant]
     Route: 048
  25. COREG [Concomitant]
     Route: 048
  26. REGLAN [Concomitant]
     Route: 048
  27. TRAMADOL HCL [Concomitant]
     Route: 048
  28. VITAMIN E [Concomitant]
     Route: 048
  29. VITAMIN B-12 [Concomitant]
  30. RANITIDINE [Concomitant]
  31. PREDNISONE [Concomitant]
     Route: 048
  32. DISALCID [Concomitant]
     Route: 048
     Dates: start: 20031013
  33. HYDROXYZINE [Concomitant]
     Route: 048
     Dates: start: 20040806
  34. ALBUTEROL [Concomitant]
  35. NICOTINE [Concomitant]
     Dosage: 21 MG/24 HR ONCE DAILY
  36. LORAZEPAM [Concomitant]
     Route: 048
  37. OXYCODONE AND ACETAMINOPHEN [Concomitant]
     Route: 048
  38. PROPOXYPHENE NAPSYLATE AND ACETAMINOPHEN [Concomitant]

REACTIONS (7)
  - CHEST PAIN [None]
  - NEPHROLITHIASIS [None]
  - PERICARDIAL EFFUSION [None]
  - PULMONARY HYPERTENSION [None]
  - SEPSIS [None]
  - TYPE 2 DIABETES MELLITUS [None]
  - URINARY TRACT INFECTION [None]
